FAERS Safety Report 16002006 (Version 1)
Quarter: 2019Q1

REPORT INFORMATION
  Report Type: Spontaneous
  Country: CN (occurrence: CN)
  Receive Date: 20190225
  Receipt Date: 20190225
  Transmission Date: 20190418
  Serious: Yes (Other)
  Sender: FDA-Public Use
  Company Number: CN-PFIZER INC-2019075935

PATIENT
  Age: 2 Year
  Sex: Male
  Weight: 14 kg

DRUGS (12)
  1. VITAMIN C [Concomitant]
     Active Substance: ASCORBIC ACID
     Indication: PHARYNGITIS
     Dosage: 1 G, 1X/DAY
     Route: 041
     Dates: start: 20190211, end: 20190218
  2. METHYLPREDNISOLONE SODIUM SUCCINATE. [Suspect]
     Active Substance: METHYLPREDNISOLONE SODIUM SUCCINATE
     Indication: PNEUMONIA
     Dosage: 20 MG, 1X/DAY
     Route: 041
     Dates: start: 20190212, end: 20190212
  3. POTASSIUM CHLORIDE. [Concomitant]
     Active Substance: POTASSIUM CHLORIDE
     Indication: PHARYNGITIS
     Dosage: 1 ML, 1X/DAY
     Route: 041
     Dates: start: 20190211, end: 20190218
  4. GLUCOSE AND SODIUM CHLORIDE [Concomitant]
     Indication: VEHICLE SOLUTION USE
     Dosage: 100 ML, 1X/DAY
     Route: 041
     Dates: start: 20190211, end: 20190218
  5. SODIUM CHLORIDE. [Concomitant]
     Active Substance: SODIUM CHLORIDE
     Indication: VEHICLE SOLUTION USE
     Dosage: 150 ML, 1X/DAY
     Route: 041
     Dates: start: 20190211, end: 20190215
  6. POTASSIUM CHLORIDE. [Concomitant]
     Active Substance: POTASSIUM CHLORIDE
     Dosage: 5 ML, 1X/DAY
     Route: 041
     Dates: start: 20190212, end: 20190212
  7. AZITHROMYCIN ANHYDROUS. [Concomitant]
     Active Substance: AZITHROMYCIN ANHYDROUS
     Dosage: 0.14 G, 1X/DAY
     Route: 041
     Dates: start: 20190211, end: 20190215
  8. VITAMIN B6 [Concomitant]
     Active Substance: PYRIDOXINE HYDROCHLORIDE
     Indication: PHARYNGITIS
     Dosage: 0.1 G, 1X/DAY
     Route: 041
     Dates: start: 20190211, end: 20190218
  9. AZITHROMYCIN ANHYDROUS. [Concomitant]
     Active Substance: AZITHROMYCIN ANHYDROUS
     Indication: PNEUMONIA
     Dosage: 0.14 G, 1X/DAY
     Route: 041
     Dates: start: 20190211, end: 20190215
  10. GLUCOSE [Concomitant]
     Active Substance: DEXTROSE
     Indication: VEHICLE SOLUTION USE
     Dosage: 250 ML, 1X/DAY
     Route: 041
     Dates: start: 20190212, end: 20190212
  11. CEFTRIAXONE SODIUM. [Concomitant]
     Active Substance: CEFTRIAXONE SODIUM
     Indication: PHARYNGITIS
     Dosage: 1 G, 1X/DAY
     Route: 041
     Dates: start: 20190211, end: 20190218
  12. CONCENTRATED SODIUM CHLORIDE [Concomitant]
     Active Substance: SODIUM CHLORIDE
     Indication: PHARYNGITIS
     Dosage: 5 ML, 1X/DAY
     Route: 041
     Dates: start: 20190212, end: 20190212

REACTIONS (2)
  - Pruritus [Recovered/Resolved]
  - Macule [Recovering/Resolving]

NARRATIVE: CASE EVENT DATE: 20190212
